FAERS Safety Report 16173406 (Version 5)
Quarter: 2020Q3

REPORT INFORMATION
  Report Type: Spontaneous
  Country: US (occurrence: US)
  Receive Date: 20190409
  Receipt Date: 20200921
  Transmission Date: 20201102
  Serious: Yes (Other)
  Sender: FDA-Public Use
  Company Number: US-HTU-2019US018539

PATIENT
  Age: 90 Year
  Sex: Female

DRUGS (2)
  1. VALCHLOR [Suspect]
     Active Substance: MECHLORETHAMINE
     Indication: CUTANEOUS T-CELL LYMPHOMA
     Dosage: UNK, ONCE DAILY
     Route: 061
     Dates: start: 20180709, end: 201902
  2. VALCHLOR [Suspect]
     Active Substance: MECHLORETHAMINE
     Dosage: UNK, QD
     Route: 061
     Dates: start: 2020

REACTIONS (5)
  - Product quality issue [Unknown]
  - Application site burn [Recovered/Resolved]
  - Cutaneous T-cell lymphoma recurrent [Recovering/Resolving]
  - Skin erosion [Recovering/Resolving]
  - Application site discharge [Recovered/Resolved]

NARRATIVE: CASE EVENT DATE: 201902
